FAERS Safety Report 17008228 (Version 1)
Quarter: 2019Q4

REPORT INFORMATION
  Report Type: Spontaneous
  Country: FR (occurrence: FR)
  Receive Date: 20191108
  Receipt Date: 20191108
  Transmission Date: 20200122
  Serious: Yes (Hospitalization)
  Sender: FDA-Public Use
  Company Number: FR-TEVA-2019-FR-1134208

PATIENT
  Age: 80 Year
  Sex: Female
  Weight: 81.5 kg

DRUGS (6)
  1. IRBESARTAN. [Concomitant]
     Active Substance: IRBESARTAN
     Dosage: 150 MG PER DAY
     Route: 048
  2. PARACETAMOL [Concomitant]
     Active Substance: ACETAMINOPHEN
     Dosage: IN THE DEMAND
     Route: 048
  3. FUROSEMIDE. [Concomitant]
     Active Substance: FUROSEMIDE
     Dosage: 40 MG PER DAY
     Route: 048
  4. AMOXICILLINE [Suspect]
     Active Substance: AMOXICILLIN
     Indication: TONSILLITIS
     Dosage: NO INFORMATION
     Route: 048
     Dates: start: 20190529, end: 20190529
  5. ASPIRINE PROTECT 300 MG, COMPRIME GASTRO-RESISTANT [Concomitant]
     Dosage: 1 DOSAGE FORM PER DAY
     Route: 048
  6. PRAVASTATINE SODIQUE [Concomitant]
     Active Substance: PRAVASTATIN SODIUM
     Dosage: 20 MG PER DAY
     Route: 048

REACTIONS (2)
  - Loss of consciousness [Recovered/Resolved]
  - Anaphylactic shock [Recovered/Resolved]

NARRATIVE: CASE EVENT DATE: 20190529
